FAERS Safety Report 15895573 (Version 2)
Quarter: 2019Q1

REPORT INFORMATION
  Report Type: Spontaneous
  Country: EG (occurrence: EG)
  Receive Date: 20190131
  Receipt Date: 20190208
  Transmission Date: 20190417
  Serious: Yes (Life-Threatening, Hospitalization)
  Sender: FDA-Public Use
  Company Number: EG-NOVOPROD-643196

PATIENT
  Age: 72 Year
  Sex: Male

DRUGS (6)
  1. CONCOR [Concomitant]
     Active Substance: BISOPROLOL FUMARATE
     Indication: HYPERTENSION
     Dosage: 1 TABLET AFTER DINNER
     Route: 048
     Dates: start: 20180729
  2. CONCOR 5 PLUS [Concomitant]
     Indication: HYPERTENSION
     Dosage: 1 TABLET BEFORE BREAKFAST
     Route: 048
  3. PLAVIX [Concomitant]
     Active Substance: CLOPIDOGREL BISULFATE
     Indication: CARDIAC DISORDER
     Dosage: 1 TABLET AFTER BREAKFAST
     Route: 048
     Dates: start: 20180729
  4. ADANCOR [Concomitant]
     Active Substance: NICORANDIL
     Indication: HYPERTENSION
     Dosage: TWICE DAILY
     Route: 048
     Dates: start: 20180729
  5. MIXTARD 30 HM PENFILL [Suspect]
     Active Substance: INSULIN HUMAN
     Indication: DIABETES MELLITUS
     Dosage: UNK (SINCE FOUR YEARS AGO)
     Route: 058
  6. MIXTARD 30 HM PENFILL [Suspect]
     Active Substance: INSULIN HUMAN
     Dosage: 85 IU, QD (45 IU AM , 40 IU PM)
     Route: 058

REACTIONS (1)
  - Coronary artery stenosis [Not Recovered/Not Resolved]

NARRATIVE: CASE EVENT DATE: 201804
